FAERS Safety Report 6925826-1 (Version None)
Quarter: 2010Q3

REPORT INFORMATION
  Report Type: 
  Country: None (occurrence: None)
  Receive Date: 20100816
  Receipt Date: 20100802
  Transmission Date: 20110219
  Serious: Yes (Other)
  Sender: FDA-Public Use
  Company Number: US-ELI_LILLY_AND_COMPANY-US201007000828

PATIENT
  Sex: Male

DRUGS (4)
  1. HUMATROPE [Suspect]
     Indication: PITUITARY TUMOUR
     Dosage: 0.2 MG, UNKNOWN
  2. SYNTHROID [Concomitant]
  3. PREDNISONE [Concomitant]
  4. TESTIM [Concomitant]

REACTIONS (2)
  - PITUITARY TUMOUR RECURRENT [None]
  - VITH NERVE PARALYSIS [None]
